FAERS Safety Report 25300352 (Version 1)
Quarter: 2025Q2

REPORT INFORMATION
  Report Type: Spontaneous
  Country: CN (occurrence: CN)
  Receive Date: 20250512
  Receipt Date: 20250512
  Transmission Date: 20250716
  Serious: Yes (Other)
  Sender: BEIGENE
  Company Number: CN-BEIGENE-BGN-2025-007314

PATIENT
  Age: 74 Year
  Weight: 61 kg

DRUGS (18)
  1. TISLELIZUMAB [Suspect]
     Active Substance: TISLELIZUMAB
     Indication: Lung adenocarcinoma
     Route: 041
  2. TISLELIZUMAB [Suspect]
     Active Substance: TISLELIZUMAB
     Indication: Non-small cell lung cancer metastatic
  3. TISLELIZUMAB [Suspect]
     Active Substance: TISLELIZUMAB
     Indication: Squamous cell carcinoma
  4. TISLELIZUMAB [Suspect]
     Active Substance: TISLELIZUMAB
     Route: 041
  5. TISLELIZUMAB [Suspect]
     Active Substance: TISLELIZUMAB
     Route: 041
  6. TISLELIZUMAB [Suspect]
     Active Substance: TISLELIZUMAB
  7. TISLELIZUMAB [Suspect]
     Active Substance: TISLELIZUMAB
  8. TISLELIZUMAB [Suspect]
     Active Substance: TISLELIZUMAB
     Route: 041
  9. TISLELIZUMAB [Suspect]
     Active Substance: TISLELIZUMAB
     Route: 041
  10. TISLELIZUMAB [Suspect]
     Active Substance: TISLELIZUMAB
     Route: 041
  11. TISLELIZUMAB [Suspect]
     Active Substance: TISLELIZUMAB
  12. TISLELIZUMAB [Suspect]
     Active Substance: TISLELIZUMAB
  13. DOCETAXEL [Suspect]
     Active Substance: DOCETAXEL
     Indication: Lung adenocarcinoma
  14. DOCETAXEL [Suspect]
     Active Substance: DOCETAXEL
     Indication: Non-small cell lung cancer metastatic
     Route: 041
  15. DOCETAXEL [Suspect]
     Active Substance: DOCETAXEL
     Indication: Squamous cell carcinoma
     Route: 041
  16. DOCETAXEL [Suspect]
     Active Substance: DOCETAXEL
  17. DOCETAXEL [Suspect]
     Active Substance: DOCETAXEL
     Route: 041
  18. DOCETAXEL [Suspect]
     Active Substance: DOCETAXEL

REACTIONS (1)
  - Myelosuppression [Unknown]
